FAERS Safety Report 4449628-3 (Version None)
Quarter: 2004Q3

REPORT INFORMATION
  Report Type: 
  Country: None (occurrence: None)
  Receive Date: 20040913
  Receipt Date: 20040826
  Transmission Date: 20050211
  Serious: Yes (Other)
  Sender: FDA-Public Use
  Company Number: 203680

PATIENT
  Age: 38 Year
  Sex: Female
  Weight: 99.7913 kg

DRUGS (3)
  1. AVONEX [Suspect]
     Indication: MULTIPLE SCLEROSIS
     Dosage: 30 MCG QW IM
     Route: 030
     Dates: start: 20040701
  2. PERCOCET [Concomitant]
  3. SLEEPING MEDICATION (NOS) [Concomitant]

REACTIONS (5)
  - CARCINOMA [None]
  - INFLUENZA LIKE ILLNESS [None]
  - NAUSEA [None]
  - SMEAR CERVIX ABNORMAL [None]
  - VOMITING [None]
